FAERS Safety Report 7384554-1 (Version None)
Quarter: 2011Q1

REPORT INFORMATION
  Report Type: 
  Country: None (occurrence: None)
  Receive Date: 20110330
  Receipt Date: 20110322
  Transmission Date: 20110831
  Serious: Yes (Hospitalization, Other)
  Sender: FDA-Public Use
  Company Number: US-NOVOPROD-325397

PATIENT
  Sex: Male
  Weight: 92.971 kg

DRUGS (6)
  1. STOOL SOFTENER [Concomitant]
     Indication: CONSTIPATION
  2. VICTOZA [Suspect]
     Dosage: 1.8 MG, QD
     Dates: start: 20090101
  3. VICTOZA [Suspect]
     Indication: TYPE 2 DIABETES MELLITUS
     Dosage: 0.6 MG, QD
     Route: 058
     Dates: start: 20091001
  4. VICTOZA [Suspect]
     Dosage: 1.2 MG, QD
     Dates: start: 20090101
  5. MIRALAX [Concomitant]
     Dosage: UNK
  6. MORPHINE [Concomitant]
     Indication: BACK PAIN
     Dosage: UNK
     Dates: start: 20100101

REACTIONS (2)
  - HEART RATE INCREASED [None]
  - HYPERTHYROIDISM [None]
